FAERS Safety Report 8910570 (Version 1)
Quarter: 2012Q4

REPORT INFORMATION
  Report Type: 
  Country: US (occurrence: US)
  Receive Date: 20121114
  Receipt Date: 20121114
  Transmission Date: 20130627
  Serious: Yes (Hospitalization)
  Sender: FDA-Public Use
  Company Number: US-GLAXOSMITHKLINE-A0994268A

PATIENT
  Age: 68 Year
  Sex: Female

DRUGS (5)
  1. PROMACTA [Suspect]
     Indication: PLATELET COUNT DECREASED
     Dosage: 25MG Per day
     Route: 048
     Dates: start: 20120806
  2. PROCRIT [Suspect]
     Indication: ANAEMIA
     Route: 065
  3. VICTRELIS [Suspect]
     Indication: HEPATITIS C
     Route: 065
  4. RIBAVIRIN [Suspect]
     Indication: HEPATITIS C
     Route: 065
  5. PEGASYS [Suspect]
     Indication: HEPATITIS C
     Route: 065

REACTIONS (10)
  - Cough [Unknown]
  - Diarrhoea [Unknown]
  - Dyspnoea [Unknown]
  - Pericardial effusion [Unknown]
  - Fatigue [Unknown]
  - Asthenia [Unknown]
  - Decreased appetite [Unknown]
  - Drug ineffective [Unknown]
  - Platelet count decreased [Unknown]
  - Off label use [Unknown]
